FAERS Safety Report 23523220 (Version 6)
Quarter: 2024Q4

REPORT INFORMATION
  Report Type: Spontaneous
  Country: US (occurrence: US)
  Receive Date: 20240214
  Receipt Date: 20241106
  Transmission Date: 20250115
  Serious: Yes (Other)
  Sender: SANOFI AVENTIS
  Company Number: US-SA-SAC20240208000471

PATIENT
  Age: 70 Year
  Sex: Male

DRUGS (32)
  1. DUPIXENT [Suspect]
     Active Substance: DUPILUMAB
     Indication: Dermatitis atopic
     Dosage: 600 MG, 1X
     Route: 058
     Dates: start: 20231010, end: 20231010
  2. DUPIXENT [Suspect]
     Active Substance: DUPILUMAB
     Dosage: 300 MG, QOW
     Route: 058
     Dates: start: 202310, end: 20240509
  3. CHOLECALCIFEROL [Concomitant]
     Active Substance: CHOLECALCIFEROL
     Route: 048
  4. VENLAFAXINE [Concomitant]
     Active Substance: VENLAFAXINE HYDROCHLORIDE
     Route: 048
  5. FLUCONAZOLE [Concomitant]
     Active Substance: FLUCONAZOLE
     Dosage: 1 DF, QW
     Route: 048
  6. SUMATRIPTAN [Concomitant]
     Active Substance: SUMATRIPTAN
     Route: 048
  7. MUPIROCIN [Concomitant]
     Active Substance: MUPIROCIN
     Route: 061
  8. KETOCONAZOLE [Concomitant]
     Active Substance: KETOCONAZOLE
     Dosage: UNK, BID
     Route: 061
  9. ADBRY [Concomitant]
     Active Substance: TRALOKINUMAB-LDRM
     Dosage: 600MG,1X
     Route: 058
  10. ADBRY [Concomitant]
     Active Substance: TRALOKINUMAB-LDRM
     Dosage: 300MG,QOW
     Route: 058
  11. MORPHINE [Concomitant]
     Active Substance: MORPHINE
     Dosage: 30 MG, QD
     Route: 048
  12. CYANOCOBALAMIN [Concomitant]
     Active Substance: CYANOCOBALAMIN
  13. LORAZEPAM [Concomitant]
     Active Substance: LORAZEPAM
     Route: 048
  14. CEFADROXIL [Concomitant]
     Active Substance: CEFADROXIL
     Route: 048
  15. HYDROCORTISONE [Concomitant]
     Active Substance: HYDROCORTISONE
     Route: 061
  16. ROSUVASTATIN [Concomitant]
     Active Substance: ROSUVASTATIN
     Route: 048
  17. FLUOCINONIDE [Concomitant]
     Active Substance: FLUOCINONIDE
     Route: 061
  18. DOXYCYCLINE HYCLATE [Concomitant]
     Active Substance: DOXYCYCLINE HYCLATE
     Dosage: 1 DF, BID
     Route: 048
  19. OMEPRAZOLE [Concomitant]
     Active Substance: OMEPRAZOLE
     Route: 048
  20. CLINDAMYCIN [Concomitant]
     Active Substance: CLINDAMYCIN
     Dosage: UNK, BID
     Route: 061
  21. ELIQUIS [Concomitant]
     Active Substance: APIXABAN
     Route: 048
  22. TRIAMCINOLONE [Concomitant]
     Active Substance: TRIAMCINOLONE
     Route: 061
  23. PREDNISONE [Concomitant]
     Active Substance: PREDNISONE
     Dosage: (1 TAB)FOR 3 DAYS,
     Route: 048
  24. PREDNISONE [Concomitant]
     Active Substance: PREDNISONE
     Dosage: 3 TABS FOR 4 DAY
     Route: 048
  25. PREDNISONE [Concomitant]
     Active Substance: PREDNISONE
     Dosage: (2 TABS)FOR 3 DAY
     Route: 048
  26. PREDNISONE [Concomitant]
     Active Substance: PREDNISONE
     Dosage: (4 TABS FOR 5 DAYS)
     Route: 048
  27. METHOCARBAMOL [Concomitant]
     Active Substance: METHOCARBAMOL
     Route: 048
  28. NARCAN [Concomitant]
     Active Substance: NALOXONE HYDROCHLORIDE
  29. TACROLIMUS [Concomitant]
     Active Substance: TACROLIMUS
     Route: 061
  30. AMOXICILLIN [Concomitant]
     Active Substance: AMOXICILLIN
     Route: 048
  31. OPZELURA [Concomitant]
     Active Substance: RUXOLITINIB PHOSPHATE
     Route: 061
  32. METOPROLOL TARTRATE [Concomitant]
     Active Substance: METOPROLOL TARTRATE
     Route: 048

REACTIONS (11)
  - Cutaneous T-cell lymphoma [Unknown]
  - Sleep disorder [Unknown]
  - Seborrhoeic dermatitis [Unknown]
  - Skin ulcer [Not Recovered/Not Resolved]
  - Pruritus [Unknown]
  - Erythema of eyelid [Unknown]
  - Erythema [Unknown]
  - Skin plaque [Unknown]
  - Skin exfoliation [Unknown]
  - Rash [Recovering/Resolving]
  - Therapeutic product effect decreased [Unknown]
